FAERS Safety Report 17438699 (Version 2)
Quarter: 2020Q1

REPORT INFORMATION
  Report Type: Spontaneous
  Country: US (occurrence: US)
  Receive Date: 20200220
  Receipt Date: 20200221
  Transmission Date: 20200409
  Serious: No
  Sender: FDA-Public Use
  Company Number: US-009507513-2002USA001304

PATIENT
  Sex: Female

DRUGS (3)
  1. TEMODAR [Suspect]
     Active Substance: TEMOZOLOMIDE
     Indication: SMALL INTESTINE CARCINOMA
     Dosage: 140 GRAM (TAKE 1 CAPSULE BY MOUTH TWICE A DAY ON DAYS 10-14 OF 28 DAY CYCLE)
     Route: 048
  2. CAPECITABINE. [Suspect]
     Active Substance: CAPECITABINE
     Dosage: UNK
  3. TEMODAR [Suspect]
     Active Substance: TEMOZOLOMIDE
     Dosage: 140 GRAM (TAKE 1 CAPSULE BY MOUTH TWICE A DAY ON DAYS 10-14 OF 28 DAY CYCLE)
     Route: 048

REACTIONS (1)
  - Fatigue [Not Recovered/Not Resolved]
